FAERS Safety Report 5060803-X (Version None)
Quarter: 2006Q2

REPORT INFORMATION
  Report Type: 
  Country: None (occurrence: None)
  Receive Date: 20060630
  Receipt Date: 20050510
  Transmission Date: 20061013
  Serious: Yes (Death)
  Sender: FDA-Public Use
  Company Number: 404606

PATIENT
  Age: 39 Year
  Sex: Male

DRUGS (1)
  1. CELLCEPT [Suspect]
     Indication: DRUG USE FOR UNKNOWN INDICATION
     Dosage: 1 GRAM 2 PER DAY ORAL
     Route: 048
     Dates: start: 20050115, end: 20050215

REACTIONS (1)
  - DEATH [None]
